FAERS Safety Report 7080333-3 (Version None)
Quarter: 2010Q4

REPORT INFORMATION
  Report Type: 
  Country: None (occurrence: None)
  Receive Date: 20101103
  Receipt Date: 20101027
  Transmission Date: 20110411
  Serious: Yes (Hospitalization)
  Sender: FDA-Public Use
  Company Number: US-SHIRE-SPV1-2010-01866

PATIENT

DRUGS (3)
  1. INTUNIV [Suspect]
     Indication: ATTENTION DEFICIT/HYPERACTIVITY DISORDER
     Dosage: 1 MG, 1X/DAY:QD
     Route: 048
     Dates: start: 20101002
  2. FLOVENT [Concomitant]
     Indication: ASTHMA
     Dosage: 110MEQ; 2 PUFFS, 2X/DAY:BID
     Route: 055
     Dates: start: 20060101
  3. ALLEGRA [Concomitant]
     Indication: SEASONAL ALLERGY
     Dosage: 30 MG, 3X/DAY:TID
     Route: 048
     Dates: start: 20080101

REACTIONS (1)
  - FAECALOMA [None]
